FAERS Safety Report 4493912-4 (Version None)
Quarter: 2004Q4

REPORT INFORMATION
  Report Type: 
  Country: None (occurrence: None)
  Receive Date: 20041102
  Receipt Date: 20041018
  Transmission Date: 20050328
  Serious: Yes (Other)
  Sender: FDA-Public Use
  Company Number: 208899

PATIENT
  Age: 43 Year
  Sex: Female

DRUGS (1)
  1. XOLAIR [Suspect]
     Indication: ASTHMA
     Dosage: 300 MG W4W
     Dates: start: 20020730

REACTIONS (3)
  - DISEASE PROGRESSION [None]
  - HEADACHE [None]
  - HYPERTENSION [None]
